FAERS Safety Report 5450086-0 (Version None)
Quarter: 2007Q3

REPORT INFORMATION
  Report Type: 
  Country: None (occurrence: None)
  Receive Date: 20070912
  Receipt Date: 20070903
  Transmission Date: 20080115
  Serious: Yes (Other)
  Sender: FDA-Public Use
  Company Number: JP-MERCK-0709USA00908

PATIENT
  Age: 96 Year
  Sex: Female

DRUGS (2)
  1. PEPCID [Suspect]
     Route: 041
     Dates: start: 20070827, end: 20070902
  2. CYANOCOBALAMIN AND PYRIDOXINE HYDROCHLORIDE AND THIAMINE MONONITRATE [Concomitant]
     Route: 065

REACTIONS (2)
  - NEUTROPHIL COUNT DECREASED [None]
  - PYREXIA [None]
